FAERS Safety Report 23192756 (Version 1)
Quarter: 2023Q4

REPORT INFORMATION
  Report Type: Spontaneous
  Country: GB (occurrence: GB)
  Receive Date: 20231116
  Receipt Date: 20231116
  Transmission Date: 20240110
  Serious: Yes (Life-Threatening, Other)
  Sender: FDA-Public Use
  Company Number: GB-PFIZER INC-PV202300183358

PATIENT
  Age: 75 Year
  Sex: Female
  Weight: 67 kg

DRUGS (7)
  1. ATRACURIUM BESYLATE [Interacting]
     Active Substance: ATRACURIUM BESYLATE
     Indication: Induction of anaesthesia
     Dosage: 40 MG
  2. ATENOLOL\CHLORTHALIDONE [Interacting]
     Active Substance: ATENOLOL\CHLORTHALIDONE
     Indication: Hypertension
     Dosage: 1 DF, DAILY
  3. FENTANYL [Concomitant]
     Active Substance: FENTANYL\FENTANYL CITRATE
     Indication: Induction of anaesthesia
     Dosage: 50 UG
  4. THIOPENTAL SODIUM [Concomitant]
     Active Substance: THIOPENTAL SODIUM
     Indication: Induction of anaesthesia
     Dosage: 175 MG
  5. LIDOCAINE HYDROCHLORIDE [Concomitant]
     Active Substance: DEXTROSE MONOHYDRATE\EPINEPHRINE\EPINEPHRINE BITARTRATE\LIDOCAINE\LIDOCAINE HYDROCHLORIDE\LIDOCAINE
     Indication: Endotracheal intubation
     Dosage: UNK
  6. NITROUS OXIDE\OXYGEN [Concomitant]
     Active Substance: NITROUS OXIDE\OXYGEN
     Dosage: UNK
  7. DIAZEPAM [Concomitant]
     Active Substance: DIAZEPAM
     Dosage: 10 MG, 2 HOURS PREOPERATIVELY

REACTIONS (2)
  - Bradycardia [Recovered/Resolved]
  - Drug interaction [Unknown]
